FAERS Safety Report 19872717 (Version 1)
Quarter: 2021Q3

REPORT INFORMATION
  Report Type: Spontaneous
  Country: DE (occurrence: DE)
  Receive Date: 20210922
  Receipt Date: 20210922
  Transmission Date: 20211014
  Serious: Yes (Hospitalization, Other)
  Sender: FDA-Public Use
  Company Number: DE-TEVA-2021-DE-1955916

PATIENT
  Age: 73 Year
  Sex: Female
  Weight: 100 kg

DRUGS (13)
  1. TILIDIN [Concomitant]
     Active Substance: NALOXONE HYDROCHLORIDE\TILIDINE HYDROCHLORIDE
     Dosage: 50 MILLIGRAM DAILY;  0?0?1?0
  2. METHOTREXATE. [Suspect]
     Active Substance: METHOTREXATE
     Dosage: SCHEME
  3. APIXABAN [Concomitant]
     Active Substance: APIXABAN
     Dosage: 30 MILLIGRAM DAILY; 1?0?0?0
  4. TORASEMID [Concomitant]
     Active Substance: TORSEMIDE
     Dosage: 10 MILLIGRAM DAILY;  1?0?0?0
  5. METFORMIN [Concomitant]
     Active Substance: METFORMIN HYDROCHLORIDE
     Dosage: 2000 MILLIGRAM DAILY;  1?0?1?0
  6. CARVEDILOL. [Concomitant]
     Active Substance: CARVEDILOL
     Dosage: 25 MILLIGRAM DAILY;  1?0?1?0
  7. CELECOXIB. [Concomitant]
     Active Substance: CELECOXIB
     Dosage: 100 MILLIGRAM DAILY; , 1?0?0?0
  8. COLECALCIFEROL (VITAMIN D) [Concomitant]
     Active Substance: CHOLECALCIFEROL
     Dosage: SCHEME
  9. PANTOPRAZOL [Concomitant]
     Active Substance: PANTOPRAZOLE SODIUM
     Dosage: 40 MILLIGRAM DAILY;  1?0?0?0
  10. ATORVASTATIN [Concomitant]
     Active Substance: ATORVASTATIN
     Dosage: 40 MILLIGRAM DAILY;  0?0?1?0
  11. MOXONIDIN [Concomitant]
     Active Substance: MOXONIDINE
     Dosage: .4 MILLIGRAM DAILY;  1?0?1?0
  12. CANDESARTAN/HYDROCHLOROTHIAZID [Concomitant]
     Active Substance: CANDESARTAN CILEXETIL\HYDROCHLOROTHIAZIDE
     Dosage: 1 DOSAGE FORMS DAILY; 32|12.5 MG, 1?0?0?0
  13. INSULIN LISPRO [Concomitant]
     Active Substance: INSULIN LISPRO
     Dosage: 50 IE, 56?0?36?0

REACTIONS (7)
  - Vomiting [Unknown]
  - Localised infection [Unknown]
  - Flank pain [Unknown]
  - Renal impairment [Unknown]
  - Abdominal pain [Unknown]
  - Hyperglycaemia [Unknown]
  - Weight increased [Unknown]
